FAERS Safety Report 9392731 (Version 1)
Quarter: 2013Q3

REPORT INFORMATION
  Report Type: Spontaneous
  Country: FR (occurrence: FR)
  Receive Date: 20130710
  Receipt Date: 20130710
  Transmission Date: 20140515
  Serious: Yes (Other)
  Sender: FDA-Public Use
  Company Number: FR-UCBSA-091263

PATIENT
  Age: 9 Year
  Sex: Male

DRUGS (2)
  1. QUASYM LP [Suspect]
     Indication: ATTENTION DEFICIT/HYPERACTIVITY DISORDER
     Route: 048
     Dates: start: 201208, end: 201208
  2. AERIUS [Concomitant]

REACTIONS (15)
  - Suicide attempt [Unknown]
  - Suicidal ideation [Unknown]
  - Depression [Unknown]
  - Memory impairment [Unknown]
  - Negativism [Unknown]
  - Dissociation [Unknown]
  - Conversion disorder [Unknown]
  - Apathy [Unknown]
  - Agitation [Unknown]
  - Aggression [Unknown]
  - Anger [Unknown]
  - Mood swings [Unknown]
  - Insomnia [Unknown]
  - Tremor [Unknown]
  - Palpitations [Unknown]
